FAERS Safety Report 20596338 (Version 1)
Quarter: 2022Q1

REPORT INFORMATION
  Report Type: Spontaneous
  Country: US (occurrence: US)
  Receive Date: 20220315
  Receipt Date: 20220315
  Transmission Date: 20220423
  Serious: No
  Sender: FDA-Public Use
  Company Number: US-BRISTOL-MYERS SQUIBB COMPANY-BMS-2022-038945

PATIENT
  Age: 78 Year
  Sex: Female

DRUGS (1)
  1. SPRYCEL [Suspect]
     Active Substance: DASATINIB
     Indication: Chronic myeloid leukaemia
     Dosage: 50 MILLIGRAM, QD
     Route: 048
     Dates: start: 202201

REACTIONS (8)
  - Confusional state [Unknown]
  - Headache [Unknown]
  - Vision blurred [Unknown]
  - Diplopia [Unknown]
  - Asthenia [Unknown]
  - Stomatitis [Unknown]
  - Heart rate increased [Unknown]
  - Dyspnoea [Unknown]
